FAERS Safety Report 23144620 (Version 1)
Quarter: 2023Q4

REPORT INFORMATION
  Report Type: Spontaneous
  Country: US (occurrence: US)
  Receive Date: 20231103
  Receipt Date: 20231103
  Transmission Date: 20240110
  Serious: No
  Sender: FDA-Public Use
  Company Number: US-PFIZER INC-PV202300180538

PATIENT
  Age: 65 Year
  Sex: Female

DRUGS (1)
  1. NURTEC ODT [Suspect]
     Active Substance: RIMEGEPANT SULFATE
     Dosage: 75 MG, TAKE 1 TABLET BY TRANSLINGUAL ROUTE (ON TOP OF TONGUE) AS NEEDED; MAXIMUM 1 DOSE PER 24 HOURS
     Route: 048

REACTIONS (2)
  - Urticaria [Unknown]
  - Pruritus [Unknown]
